FAERS Safety Report 4835838-X (Version None)
Quarter: 2005Q4

REPORT INFORMATION
  Report Type: 
  Country: None (occurrence: None)
  Receive Date: 20051118
  Receipt Date: 20051107
  Transmission Date: 20060501
  Serious: Yes (Hospitalization, Other)
  Sender: FDA-Public Use
  Company Number: 2005095100

PATIENT
  Age: 44 Year
  Sex: Female
  Weight: 74.8435 kg

DRUGS (3)
  1. DEPO-PROVERA [Suspect]
     Indication: UTERINE HAEMORRHAGE
     Dosage: SINGLE INJECTION
     Dates: start: 20050426, end: 20050426
  2. LUPRON [Suspect]
     Indication: UTERINE HAEMORRHAGE
     Dosage: (11.5 MG, FIRST INJECTION), INTRAMUSCULAR
     Route: 030
     Dates: start: 20050426
  3. ALEVE [Concomitant]

REACTIONS (12)
  - BLOOD OESTROGEN INCREASED [None]
  - BONE PAIN [None]
  - DRUG ADMINISTRATION ERROR [None]
  - DRUG PRESCRIBING ERROR [None]
  - INSOMNIA [None]
  - LEGAL PROBLEM [None]
  - MALAISE [None]
  - MENTAL DISORDER [None]
  - ORAL INTAKE REDUCED [None]
  - PELVIC PAIN [None]
  - SUICIDAL IDEATION [None]
  - WEIGHT DECREASED [None]
